FAERS Safety Report 5133425-X (Version None)
Quarter: 2006Q4

REPORT INFORMATION
  Report Type: 
  Country: None (occurrence: None)
  Receive Date: 20061024
  Receipt Date: 20061009
  Transmission Date: 20070319
  Serious: Yes (Hospitalization, Other)
  Sender: FDA-Public Use
  Company Number: 2006PK02074

PATIENT
  Age: 24131 Day
  Sex: Female
  Weight: 67.1 kg

DRUGS (9)
  1. ARIMIDEX [Suspect]
     Indication: BREAST CANCER
     Route: 048
     Dates: start: 20041001
  2. XEFO [Concomitant]
  3. SINTROM [Concomitant]
  4. DIGIMERCK [Concomitant]
  5. SEDACORONE [Concomitant]
  6. LISINOPRIL [Concomitant]
  7. PANTOPRAZOLE SODIUM [Concomitant]
  8. DURAGESIC-100 [Concomitant]
     Dosage: 25 UG/H
  9. ISOPTIN [Concomitant]

REACTIONS (8)
  - ATRIAL FIBRILLATION [None]
  - CARDIAC FAILURE [None]
  - EMBOLISM [None]
  - PLEURAL EFFUSION [None]
  - PULMONARY EMBOLISM [None]
  - RIGHT VENTRICULAR FAILURE [None]
  - TACHYCARDIA [None]
  - THROMBOSIS [None]
